FAERS Safety Report 5144791-3 (Version None)
Quarter: 2006Q4

REPORT INFORMATION
  Report Type: 
  Country: None (occurrence: None)
  Receive Date: 20061103
  Receipt Date: 20061103
  Transmission Date: 20070319
  Serious: Yes (Life-Threatening, Hospitalization, Disabling)
  Sender: FDA-Public Use
  Company Number: None

PATIENT
  Age: 81 Year
  Sex: Male
  Weight: 84.369 kg

DRUGS (8)
  1. LOVENOX [Suspect]
     Indication: ATRIAL FIBRILLATION
     Dosage: 85 MG Q 12 H SC
     Route: 058
  2. LOVENOX [Suspect]
     Indication: ATRIAL FLUTTER
     Dosage: 85 MG Q 12 H SC
     Route: 058
  3. WARFARIN SODIUM [Suspect]
     Indication: ATRIAL FLUTTER
     Dosage: 5 MG PO DAILY
     Route: 048
     Dates: start: 20060630, end: 20060703
  4. ASPIRIN [Concomitant]
  5. PLAVIX [Concomitant]
  6. METOPROLOL TARTRATE [Concomitant]
  7. AVAPRO [Concomitant]
  8. HYDROCHLOROTHIAZIDE [Concomitant]

REACTIONS (3)
  - CEREBELLAR HAEMORRHAGE [None]
  - DYSPHAGIA [None]
  - INTERNATIONAL NORMALISED RATIO DECREASED [None]
